FAERS Safety Report 23463581 (Version 1)
Quarter: 2024Q1

REPORT INFORMATION
  Report Type: Spontaneous
  Country: CN (occurrence: CN)
  Receive Date: 20240131
  Receipt Date: 20240131
  Transmission Date: 20240410
  Serious: Yes (Hospitalization, Other)
  Sender: FDA-Public Use
  Company Number: CN-009507513-2401CHN015499

PATIENT
  Age: 54 Year
  Sex: Male
  Weight: 84 kg

DRUGS (6)
  1. KEYTRUDA [Suspect]
     Active Substance: PEMBROLIZUMAB
     Indication: Lung squamous cell carcinoma metastatic
     Dosage: 200 MILLIGRAM, ONCE (DOSE ALSO REPORTED AS 75 MG, CONFLICTING INFORMATION IN THE ORIGINAL AGENCY REP
     Route: 041
     Dates: start: 20231223, end: 20231223
  2. SODIUM CHLORIDE [Concomitant]
     Active Substance: SODIUM CHLORIDE
     Dosage: STRENGTH: 0.9%, 100 MILLILITER, ONCE
     Route: 041
     Dates: start: 20231223
  3. SODIUM CHLORIDE [Concomitant]
     Active Substance: SODIUM CHLORIDE
     Dosage: STRENGTH: 0.9%, 250 MILLILITER, ONCE
     Route: 041
     Dates: start: 20231223
  4. SODIUM CHLORIDE [Concomitant]
     Active Substance: SODIUM CHLORIDE
     Dosage: STRENGTH: 0.9%, 285 MILLILITER, (D1-D3)
  5. DOCETAXEL [Concomitant]
     Active Substance: DOCETAXEL\DOCETAXEL ANHYDROUS
     Indication: Neoplasm malignant
     Dosage: 100 MILLIGRAM, ONCE (ALSO REPORTED AS ONCE A DAY, CONFLICTING INFORMATION IN THE ORIGINAL AGENCY REP
     Route: 041
     Dates: start: 20231223, end: 20231223
  6. ENDOSTATIN [Concomitant]
     Active Substance: ENDOSTATIN
     Indication: White blood cell count abnormal
     Dosage: 75 MILLIGRAM, QD (D1-D3)
     Dates: start: 20231110, end: 20231111

REACTIONS (11)
  - Platelet count decreased [Unknown]
  - Myocarditis [Unknown]
  - Hepatic function abnormal [Unknown]
  - Renal impairment [Unknown]
  - Pneumonitis [Unknown]
  - Infection [Unknown]
  - Immune-mediated lung disease [Unknown]
  - Aortic arteriosclerosis [Unknown]
  - Left ventricular dysfunction [Unknown]
  - Ecchymosis [Unknown]
  - Product use issue [Unknown]

NARRATIVE: CASE EVENT DATE: 20240117
